FAERS Safety Report 7867364-8 (Version None)
Quarter: 2011Q4

REPORT INFORMATION
  Report Type: 
  Country: None (occurrence: None)
  Receive Date: 20111028
  Receipt Date: 20111021
  Transmission Date: 20120403
  Serious: Yes (Hospitalization, Other)
  Sender: FDA-Public Use
  Company Number: FR-BRISTOL-MYERS SQUIBB COMPANY-16086928

PATIENT
  Age: 65 Year
  Sex: Female
  Weight: 72 kg

DRUGS (3)
  1. KIVEXA [Suspect]
     Indication: HIV INFECTION
     Dosage: 1DF:600MG/300MG
     Route: 048
     Dates: start: 20060329
  2. REYATAZ [Suspect]
     Indication: HIV INFECTION
     Route: 048
     Dates: start: 20060329, end: 20110704
  3. NORVIR [Suspect]
     Indication: HIV INFECTION
     Route: 048

REACTIONS (6)
  - HYPERKALAEMIA [None]
  - RENAL FAILURE [None]
  - HYPOTENSION [None]
  - DIARRHOEA [None]
  - VOMITING [None]
  - DEHYDRATION [None]
